FAERS Safety Report 5383304-8 (Version None)
Quarter: 2007Q3

REPORT INFORMATION
  Report Type: 
  Country: None (occurrence: None)
  Receive Date: 20070710
  Receipt Date: 20070628
  Transmission Date: 20080115
  Serious: Yes (Other)
  Sender: FDA-Public Use
  Company Number: GB-PFIZER INC-2007051201

PATIENT
  Age: 30 Year
  Sex: Female

DRUGS (3)
  1. SOLU-MEDROL [Suspect]
     Indication: LOWER RESPIRATORY TRACT INFECTION
  2. AZATHIOPRINE [Suspect]
     Indication: HEART AND LUNG TRANSPLANT
  3. CYCLOSPORINE [Suspect]
     Indication: HEART AND LUNG TRANSPLANT

REACTIONS (7)
  - DRUG EXPOSURE DURING PREGNANCY [None]
  - LOWER RESPIRATORY TRACT INFECTION [None]
  - PREMATURE LABOUR [None]
  - PSEUDOMONAS INFECTION [None]
  - PULMONARY FUNCTION TEST DECREASED [None]
  - RESPIRATORY GAS EXCHANGE DISORDER [None]
  - STAPHYLOCOCCAL INFECTION [None]
